FAERS Safety Report 7355208-2 (Version None)
Quarter: 2011Q1

REPORT INFORMATION
  Report Type: 
  Country: None (occurrence: None)
  Receive Date: 20110316
  Receipt Date: 20110307
  Transmission Date: 20110831
  Serious: Yes (Hospitalization, Other)
  Sender: FDA-Public Use
  Company Number: US-ELI_LILLY_AND_COMPANY-US201103002759

PATIENT
  Age: 65 Year
  Sex: Male

DRUGS (1)
  1. EFFIENT [Suspect]

REACTIONS (5)
  - SWOLLEN TONGUE [None]
  - THROMBOCYTOPENIA [None]
  - GINGIVAL SWELLING [None]
  - IDIOPATHIC THROMBOCYTOPENIC PURPURA [None]
  - RASH MACULAR [None]
